FAERS Safety Report 4298959-9 (Version None)
Quarter: 2004Q1

REPORT INFORMATION
  Report Type: 
  Country: None (occurrence: None)
  Receive Date: 20040219
  Receipt Date: 20031216
  Transmission Date: 20041129
  Serious: Yes (Hospitalization)
  Sender: FDA-Public Use
  Company Number: PHEH2003US11487

PATIENT
  Age: 60 Year
  Sex: Female

DRUGS (2)
  1. CLOZARIL [Suspect]
     Dosage: UNK, UNK
     Route: 048
  2. STEROIDS NOS [Suspect]

REACTIONS (6)
  - AGITATION [None]
  - ASTHMA [None]
  - CHRONIC OBSTRUCTIVE AIRWAYS DISEASE [None]
  - DYSPNOEA [None]
  - PARANOIA [None]
  - PSYCHOTIC DISORDER [None]
